FAERS Safety Report 7608296-X (Version None)
Quarter: 2011Q3

REPORT INFORMATION
  Report Type: 
  Country: None (occurrence: None)
  Receive Date: 20110706
  Receipt Date: 20110621
  Transmission Date: 20111222
  Serious: Yes (Life-Threatening, Hospitalization)
  Sender: FDA-Public Use
  Company Number: AUR-APL-2011-03553

PATIENT
  Age: 24 Year
  Sex: Female

DRUGS (3)
  1. MIRTAZAPINE [Suspect]
     Indication: DEPRESSION
     Dosage: (45 MG), ORAL
     Route: 048
     Dates: start: 20101101, end: 20101117
  2. PROMETHAZINE [Suspect]
     Indication: PRODUCT USED FOR UNKNOWN INDICATION
     Dosage: ORAL
     Route: 048
  3. METAMIZOL (METAMIZOLE MAGNESIUM) [Suspect]
     Indication: PRODUCT USED FOR UNKNOWN INDICATION
     Dosage: (AS REQUIRED), ORAL
     Route: 048
     Dates: start: 20101101

REACTIONS (21)
  - NAUSEA [None]
  - PYREXIA [None]
  - PURULENCE [None]
  - ORAL CANDIDIASIS [None]
  - AGRANULOCYTOSIS [None]
  - DYSPHAGIA [None]
  - VULVOVAGINAL CANDIDIASIS [None]
  - LARGE INTESTINAL ULCER [None]
  - CIRCULATORY COLLAPSE [None]
  - CHILLS [None]
  - DIARRHOEA [None]
  - CARDIOVASCULAR DISORDER [None]
  - EYELID INFECTION [None]
  - INTERTRIGO [None]
  - ABDOMINAL PAIN [None]
  - LEUKOPENIA [None]
  - VOMITING [None]
  - LACERATION [None]
  - FURUNCLE [None]
  - DRUG HYPERSENSITIVITY [None]
  - PNEUMOCOCCAL SEPSIS [None]
